FAERS Safety Report 4624347-9 (Version None)
Quarter: 2005Q1

REPORT INFORMATION
  Report Type: 
  Country: None (occurrence: None)
  Receive Date: 20050107
  Receipt Date: 20041008
  Transmission Date: 20050727
  Serious: No
  Sender: FDA-Public Use
  Company Number: 235132K04USA

PATIENT
  Age: 59 Year
  Sex: Male

DRUGS (16)
  1. REBIF [Suspect]
     Indication: MULTIPLE SCLEROSIS
     Dosage: 44 MCG, 3 IN 1 WEEKS, SUBCUTANEOUS
     Route: 058
     Dates: start: 20021003
  2. BLOOD PRESSURE MEDICATIONS (UNSPECIFIED) (ALL OTHER THERAPEUTIC PRODUC [Concomitant]
  3. MIPAX (DIMETHYL PHTHALATE) [Concomitant]
  4. ADVAIR DISKUS 100/50 [Concomitant]
  5. PROCTOFOAM (PRAMOCAINE HYDROCHLORIDE) [Concomitant]
  6. ALLEGRA [Concomitant]
  7. XANAX [Concomitant]
  8. ELAVIL [Concomitant]
  9. COREG [Concomitant]
  10. COZAAR [Concomitant]
  11. DITROPAN XL [Concomitant]
  12. HYZAAR [Concomitant]
  13. ZOLOFT [Concomitant]
  14. PYRIDIUM (PHENAZOPYRIDINE HYDROCHLORIDE) [Concomitant]
  15. POTASSIUM CHLORIDE [Concomitant]
  16. LUPRON [Concomitant]

REACTIONS (5)
  - DIZZINESS [None]
  - FATIGUE [None]
  - HALLUCINATION [None]
  - HEADACHE [None]
  - HYPERCHOLESTEROLAEMIA [None]
